FAERS Safety Report 9708033 (Version 1)
Quarter: 2013Q4

REPORT INFORMATION
  Report Type: Spontaneous
  Country: IE (occurrence: IE)
  Receive Date: 20131125
  Receipt Date: 20131125
  Transmission Date: 20140711
  Serious: Yes (Death)
  Sender: FDA-Public Use
  Company Number: IE-JNJFOC-20131112209

PATIENT
  Age: 82 Year
  Sex: Male

DRUGS (6)
  1. XARELTO [Suspect]
     Indication: PRODUCT USED FOR UNKNOWN INDICATION
     Route: 048
     Dates: start: 20130311, end: 20130320
  2. LANSOPRAZOLE [Concomitant]
     Route: 065
  3. BISOPROLOL [Concomitant]
     Route: 065
  4. DUTASTERIDE [Concomitant]
     Route: 065
  5. OLMESARTAN [Concomitant]
     Dosage: 20 MG/ 20.5 MG, QD
     Route: 065
  6. ROSUVASTATIN [Concomitant]
     Route: 065

REACTIONS (1)
  - Drug prescribing error [Fatal]
